FAERS Safety Report 7922593-X (Version None)
Quarter: 2011Q4

REPORT INFORMATION
  Report Type: 
  Country: None (occurrence: None)
  Receive Date: 20111117
  Receipt Date: 20110121
  Transmission Date: 20120403
  Serious: No
  Sender: FDA-Public Use
  Company Number: US-AMGEN-USASP2011000952

PATIENT
  Age: 57 Year
  Sex: Female

DRUGS (2)
  1. ENBREL [Suspect]
     Indication: FIBROMYALGIA
  2. ENBREL [Suspect]
     Indication: RHEUMATOID ARTHRITIS
     Dosage: 25 MG, 2 TIMES/WK
     Dates: start: 20020105, end: 20100729

REACTIONS (5)
  - OEDEMA PERIPHERAL [None]
  - NODULE [None]
  - FINGER DEFORMITY [None]
  - FOOT DEFORMITY [None]
  - PAIN IN EXTREMITY [None]
